FAERS Safety Report 18382377 (Version 1)
Quarter: 2020Q4

REPORT INFORMATION
  Report Type: Spontaneous
  Country: US (occurrence: US)
  Receive Date: 20201014
  Receipt Date: 20201014
  Transmission Date: 20210114
  Serious: Yes (Other)
  Sender: FDA-Public Use
  Company Number: None

PATIENT
  Age: 56 Year
  Sex: Female
  Weight: 56.25 kg

DRUGS (1)
  1. DEXAMETHASONE SODIUM PHOSPHATE. [Suspect]
     Active Substance: DEXAMETHASONE SODIUM PHOSPHATE
     Indication: PRODUCT USED FOR UNKNOWN INDICATION
     Dosage: ?          OTHER ROUTE:INJECTION?
     Dates: start: 20190607, end: 20190607

REACTIONS (5)
  - Amnesia [None]
  - Cognitive disorder [None]
  - Anxiety [None]
  - Speech disorder [None]
  - Depression [None]

NARRATIVE: CASE EVENT DATE: 20190607
